FAERS Safety Report 6436762-1 (Version None)
Quarter: 2009Q4

REPORT INFORMATION
  Report Type: 
  Country: None (occurrence: None)
  Receive Date: 20091111
  Receipt Date: 20091104
  Transmission Date: 20100525
  Serious: Yes (Other)
  Sender: FDA-Public Use
  Company Number: GB-B.I. PHARMACEUTICALS,INC./RIDGEFIELD-2006-UK-03596UK

PATIENT
  Age: 35 Year
  Sex: Female

DRUGS (8)
  1. VIRAMUNE [Suspect]
     Indication: HIV INFECTION
     Dosage: 400MG/DAY
     Route: 048
     Dates: end: 20051225
  2. EPZICOM [Suspect]
     Indication: HIV INFECTION
     Dosage: 1/DAY
     Route: 048
     Dates: end: 20051225
  3. COMBIVIR [Suspect]
     Indication: HIV INFECTION
     Dosage: 2/DAY
     Route: 048
     Dates: start: 20060411
  4. NORVIR [Suspect]
     Indication: HIV INFECTION
     Dosage: 200MG/DAY
     Route: 048
     Dates: start: 20060411
  5. INVIRASE [Suspect]
     Indication: HIV INFECTION
     Dosage: 2000 MG
     Route: 048
     Dates: start: 20060411
  6. KIVEXA [Suspect]
     Route: 048
  7. ABACAVIR [Suspect]
  8. LAMIVUDINE [Suspect]
     Dosage: 1 DF 2/1 DAYS
     Dates: start: 20060411

REACTIONS (2)
  - ALPHA 1 FOETOPROTEIN ABNORMAL [None]
  - LABORATORY TEST ABNORMAL [None]
